FAERS Safety Report 10836273 (Version 2)
Quarter: 2015Q2

REPORT INFORMATION
  Report Type: Report from Study
  Country: US (occurrence: US)
  Receive Date: 20150219
  Receipt Date: 20150528
  Transmission Date: 20150821
  Serious: Yes (Hospitalization)
  Sender: FDA-Public Use
  Company Number: GXBR2015US000579

PATIENT
  Age: 53 Year
  Sex: Male
  Weight: 89.9 kg

DRUGS (12)
  1. MAGNESIUM AMINO ACID CHELATE [Concomitant]
     Indication: HYPOMAGNESAEMIA
     Dosage: 133 MG, BID
     Route: 048
     Dates: start: 20150107, end: 20150122
  2. OXYBUTYNIN [Concomitant]
     Active Substance: OXYBUTYNIN
     Indication: HYPERTONIC BLADDER
     Dosage: 15 MG, QD
     Route: 048
     Dates: start: 20150107, end: 20150122
  3. AMIKACIN [Concomitant]
     Active Substance: AMIKACIN
     Indication: OSTEOMYELITIS
     Dosage: 1000 MG, QD
     Route: 042
     Dates: start: 20150120, end: 20150122
  4. MEROPENEM. [Concomitant]
     Active Substance: MEROPENEM
     Indication: OSTEOMYELITIS
     Dosage: 2 G, Q12H
     Route: 042
     Dates: start: 20150107, end: 20150122
  5. FLAGYL [Concomitant]
     Active Substance: METRONIDAZOLE\METRONIDAZOLE HYDROCHLORIDE
     Indication: OSTEOMYELITIS
     Dosage: 500 MG, TID
     Route: 048
     Dates: start: 20150107, end: 20150122
  6. BACLOFEN. [Concomitant]
     Active Substance: BACLOFEN
     Indication: MUSCLE SPASMS
     Dosage: 20 MG, QID
     Route: 048
     Dates: start: 20150107, end: 20150122
  7. ENOXAPARIN SODIUM. [Suspect]
     Active Substance: ENOXAPARIN SODIUM
     Indication: THROMBOSIS PROPHYLAXIS
     Dosage: 80 MG, Q12H
     Route: 058
     Dates: end: 20150122
  8. DULCOLAX [Concomitant]
     Active Substance: BISACODYL OR DOCUSATE SODIUM
     Indication: NEUROGENIC BOWEL
     Dosage: 10 MG, QD
     Route: 054
     Dates: start: 20150107, end: 20150122
  9. ZYVOX [Concomitant]
     Active Substance: LINEZOLID
     Indication: OSTEOMYELITIS
     Dosage: 600 MG, BID
     Route: 048
     Dates: start: 20150107, end: 20150122
  10. DIFLUCAN [Concomitant]
     Active Substance: FLUCONAZOLE
     Indication: TINEA CRURIS
     Dosage: 100 MG, QD
     Route: 048
     Dates: start: 20150107, end: 20150122
  11. GABAPENTIN. [Concomitant]
     Active Substance: GABAPENTIN
     Indication: NEURALGIA
     Dosage: 600 MG, TID
     Route: 048
     Dates: start: 20150107, end: 20150122
  12. TIZANIDINE (TIZANIDINE) [Concomitant]
     Active Substance: TIZANIDINE
     Indication: MUSCLE SPASMS
     Dosage: 4 MG, TID
     Route: 048
     Dates: start: 20150107, end: 20150122

REACTIONS (2)
  - Foot fracture [Unknown]
  - Femur fracture [Recovered/Resolved]

NARRATIVE: CASE EVENT DATE: 20150122
